FAERS Safety Report 4587497-1 (Version None)
Quarter: 2005Q1

REPORT INFORMATION
  Report Type: 
  Country: None (occurrence: None)
  Receive Date: 20050215
  Receipt Date: 20050202
  Transmission Date: 20050727
  Serious: Yes (Hospitalization)
  Sender: FDA-Public Use
  Company Number: 2005024142

PATIENT
  Age: 62 Year
  Sex: Male

DRUGS (7)
  1. FLUCONAZOLE [Suspect]
     Indication: ILL-DEFINED DISORDER
     Dosage: ORAL
     Route: 048
     Dates: start: 20050103, end: 20050104
  2. ARGININE (ARGININE) [Suspect]
     Indication: ILL-DEFINED DISORDER
     Dosage: ORAL
     Route: 048
     Dates: start: 20050103, end: 20050104
  3. MILNACIPRAN (MILNACIPRAN) [Concomitant]
  4. CYAMEMAZINE (CYAMEMAZINE) [Concomitant]
  5. ACEPROMETAZINE (ACEPROMETAZINE) [Concomitant]
  6. FLUTICASONE PROPIONATE [Concomitant]
  7. THEOPHYLLINE MONOHYRATE (THEOPHYLLINE MONOHYDRATE) [Concomitant]

REACTIONS (1)
  - ANAPHYLACTIC SHOCK [None]
